FAERS Safety Report 7214596-8 (Version None)
Quarter: 2010Q4

REPORT INFORMATION
  Report Type: 
  Country: None (occurrence: None)
  Receive Date: 20101227
  Receipt Date: 20101217
  Transmission Date: 20110411
  Serious: No
  Sender: FDA-Public Use
  Company Number: 2010SP064729

PATIENT
  Age: 70 Year
  Sex: Female

DRUGS (2)
  1. PEG-INTRON (PEGINTERFERON ALFA-2B /01543001/) [Suspect]
     Indication: HEPATITIS C
     Dosage: 60 MCG; QW; SC
     Route: 058
     Dates: start: 20101213
  2. REBETOL [Suspect]
     Indication: HEPATITIS C
     Dosage: 600 MG; QD; PO
     Route: 048
     Dates: start: 20101213

REACTIONS (1)
  - HAEMOPTYSIS [None]
